FAERS Safety Report 9195279 (Version 1)
Quarter: 2013Q1

REPORT INFORMATION
  Report Type: Spontaneous
  Country: US (occurrence: US)
  Receive Date: 20130328
  Receipt Date: 20130328
  Transmission Date: 20140127
  Serious: No
  Sender: FDA-Public Use
  Company Number: US-ALLERGAN-1207733US

PATIENT
  Age: 66 Year
  Sex: Female

DRUGS (2)
  1. LUMIGAN [Suspect]
     Indication: INTRAOCULAR PRESSURE TEST
     Dosage: 2 GTT, UNK
     Route: 047
     Dates: start: 201203
  2. ENBREL [Concomitant]
     Indication: PRODUCT USED FOR UNKNOWN INDICATION
     Dosage: UNK UNK, Q WEEK

REACTIONS (2)
  - Milia [Not Recovered/Not Resolved]
  - Acne [Not Recovered/Not Resolved]
